FAERS Safety Report 8495199-4 (Version None)
Quarter: 2012Q3

REPORT INFORMATION
  Report Type: 
  Country: None (occurrence: None)
  Receive Date: 20120709
  Receipt Date: 20120629
  Transmission Date: 20120928
  Serious: Yes (Hospitalization)
  Sender: FDA-Public Use
  Company Number: US-CELGENEUS-163-AB007-12052196

PATIENT
  Sex: Male
  Weight: 91.708 kg

DRUGS (12)
  1. ASPIRIN [Concomitant]
     Indication: PROPHYLAXIS
     Dosage: 81 MILLIGRAM
     Route: 048
     Dates: start: 20020101
  2. OXYCODONE HCL [Concomitant]
     Indication: PAIN
     Dosage: 10 MILLIGRAM
     Route: 048
     Dates: start: 20120320
  3. VITAMIN C AND E [Concomitant]
     Dosage: 1 TABLET
     Route: 048
     Dates: start: 20020101
  4. FLUIDS [Concomitant]
     Route: 041
     Dates: start: 20120101
  5. GEMCITABINE [Suspect]
     Dosage: 800 MILLIGRAM/SQ. METER
     Route: 041
     Dates: start: 20120501, end: 20120605
  6. PROCHLORPERAZINE [Concomitant]
     Route: 065
  7. ABRAXANE [Suspect]
     Dosage: 100 MILLIGRAM/SQ. METER
     Route: 041
     Dates: start: 20120501, end: 20120605
  8. LISINOPRIL [Concomitant]
     Indication: HYPERTENSION
     Dosage: 10 MILLIGRAM
     Route: 048
     Dates: start: 20080101
  9. EMLA [Concomitant]
     Route: 061
  10. HYDROCODONE [Concomitant]
     Route: 065
  11. ABRAXANE [Suspect]
     Dosage: 125 MILLIGRAM/SQ. METER
     Route: 041
     Dates: start: 20120214
  12. GEMCITABINE [Suspect]
     Dosage: 1000 MILLIGRAM/SQ. METER
     Route: 041
     Dates: start: 20120214

REACTIONS (1)
  - ASCITES [None]
